FAERS Safety Report 6067778-5 (Version None)
Quarter: 2009Q1

REPORT INFORMATION
  Report Type: 
  Country: None (occurrence: None)
  Receive Date: 20090205
  Receipt Date: 20090127
  Transmission Date: 20090719
  Serious: Yes (Hospitalization)
  Sender: FDA-Public Use
  Company Number: US-ABBOTT-09P-163-0500251-00

PATIENT
  Sex: Female
  Weight: 63.56 kg

DRUGS (11)
  1. HUMIRA [Suspect]
     Indication: CROHN'S DISEASE
     Route: 058
     Dates: start: 20071201, end: 20080201
  2. HUMIRA [Suspect]
  3. HUMIRA [Suspect]
  4. HUMIRA [Suspect]
  5. HUMIRA [Suspect]
  6. HUMIRA [Suspect]
  7. HUMIRA [Suspect]
     Dates: start: 20071201, end: 20080201
  8. NEXIUM [Concomitant]
     Indication: CROHN'S DISEASE
  9. PENTASA [Concomitant]
     Indication: CROHN'S DISEASE
  10. HYDROCHLOROTHIAZIDE [Concomitant]
     Indication: HYPERTENSION
     Dates: start: 20081211
  11. PROZAC [Concomitant]
     Indication: DEPRESSION

REACTIONS (13)
  - ABNORMAL LABOUR [None]
  - CROHN'S DISEASE [None]
  - DIPLOPIA [None]
  - HYPEREMESIS GRAVIDARUM [None]
  - HYPERTENSION [None]
  - KLEBSIELLA INFECTION [None]
  - LOWER GASTROINTESTINAL HAEMORRHAGE [None]
  - MIGRAINE [None]
  - NEPHROLITHIASIS [None]
  - PREMATURE LABOUR [None]
  - SEPSIS [None]
  - SUBCUTANEOUS ABSCESS [None]
  - URINARY TRACT INFECTION [None]
